FAERS Safety Report 10750593 (Version 1)
Quarter: 2015Q1

REPORT INFORMATION
  Report Type: Spontaneous
  Country: FI (occurrence: FI)
  Receive Date: 20150130
  Receipt Date: 20150130
  Transmission Date: 20150721
  Serious: Yes (Hospitalization)
  Sender: FDA-Public Use
  Company Number: FI-RANBAXY-2015RR-92129

PATIENT
  Age: 34 Year
  Sex: Female

DRUGS (4)
  1. ATORVASTATIN ORION [Suspect]
     Active Substance: ATORVASTATIN CALCIUM
     Indication: PRODUCT USED FOR UNKNOWN INDICATION
     Dosage: 20 MG, UNK
     Route: 048
     Dates: start: 201501, end: 201501
  2. ROSUVASTATIN [Concomitant]
     Active Substance: ROSUVASTATIN
     Indication: PRODUCT USED FOR UNKNOWN INDICATION
     Route: 065
  3. CERAZETTE [Interacting]
     Active Substance: DESOGESTREL
     Indication: CONTRACEPTION
     Dosage: 75 ?G, QD
     Route: 048
     Dates: start: 201501
  4. PLAVIX [Interacting]
     Active Substance: CLOPIDOGREL BISULFATE
     Indication: PRODUCT USED FOR UNKNOWN INDICATION
     Dosage: UNK
     Route: 065
     Dates: start: 201411

REACTIONS (15)
  - Hyperkeratosis [Recovered/Resolved]
  - Dizziness [Recovered/Resolved]
  - Fatigue [Recovered/Resolved]
  - Vision blurred [Recovered/Resolved]
  - Diplopia [Recovered/Resolved]
  - Rash [Recovered/Resolved]
  - Muscular weakness [Recovered/Resolved]
  - Hypoaesthesia [Not Recovered/Not Resolved]
  - Syncope [Recovered/Resolved]
  - Drug interaction [Recovered/Resolved]
  - Myocardial infarction [Recovered/Resolved]
  - Eye swelling [Recovered/Resolved]
  - Vomiting [Recovered/Resolved]
  - Eyelid oedema [Recovered/Resolved]
  - Nausea [Recovered/Resolved]

NARRATIVE: CASE EVENT DATE: 20150114
